FAERS Safety Report 21268067 (Version 2)
Quarter: 2023Q1

REPORT INFORMATION
  Report Type: Spontaneous
  Country: US (occurrence: US)
  Receive Date: 20220829
  Receipt Date: 20230104
  Transmission Date: 20230418
  Serious: Yes (Hospitalization)
  Sender: FDA-Public Use
  Company Number: US-BRISTOL-MYERS SQUIBB COMPANY-2022-097534

PATIENT
  Age: 64 Year
  Sex: Male

DRUGS (1)
  1. REVLIMID [Suspect]
     Active Substance: LENALIDOMIDE
     Indication: Diffuse large B-cell lymphoma
     Route: 048
     Dates: start: 202002

REACTIONS (12)
  - Peripheral swelling [Unknown]
  - Pain in extremity [Unknown]
  - Frequent bowel movements [Unknown]
  - Dyskinesia [Unknown]
  - Muscle spasms [Unknown]
  - Balance disorder [Unknown]
  - Off label use [Unknown]
  - Pain [Unknown]
  - Fall [Unknown]
  - Decreased appetite [Unknown]
  - Insomnia [Unknown]
  - Asthenia [Unknown]

NARRATIVE: CASE EVENT DATE: 20220801
